FAERS Safety Report 10469192 (Version 1)
Quarter: 2014Q3

REPORT INFORMATION
  Report Type: Spontaneous
  Country: US (occurrence: None)
  Receive Date: 20140829
  Receipt Date: 20140829
  Transmission Date: 20150326
  Serious: Yes (Other)
  Sender: FDA-Public Use
  Company Number: PHEH2013US020462

PATIENT
  Age: 53 Year
  Sex: Male

DRUGS (4)
  1. HYDROCHLOROTHIAZIDE (HYDROCHLOROTHIAZIDE) [Concomitant]
     Active Substance: HYDROCHLOROTHIAZIDE
  2. ASPIRIN. [Concomitant]
     Active Substance: ASPIRIN
  3. CRESTOR [Concomitant]
     Active Substance: ROSUVASTATIN CALCIUM
  4. EXFORGE [Suspect]
     Active Substance: AMLODIPINE BESYLATE\VALSARTAN
     Indication: HYPERTENSION
     Dosage: 1 DF (160 MG VALS, UNK AMLO), QD, ORAL
     Route: 048
     Dates: end: 20130925

REACTIONS (6)
  - Lip oedema [None]
  - Hypersensitivity [None]
  - Hypertension [None]
  - Dermatitis [None]
  - Eye swelling [None]
  - Rash [None]
